FAERS Safety Report 5869614-6 (Version None)
Quarter: 2008Q3

REPORT INFORMATION
  Report Type: 
  Country: None (occurrence: None)
  Receive Date: 20080904
  Receipt Date: 20080709
  Transmission Date: 20090109
  Serious: No
  Sender: FDA-Public Use
  Company Number: US-KINGPHARMUSA00001-K200800804

PATIENT

DRUGS (1)
  1. CYTOMEL [Suspect]
     Dosage: 25 MCG, UNK
     Dates: start: 20030701

REACTIONS (3)
  - ALOPECIA [None]
  - HEART RATE DECREASED [None]
  - HYPOTHYROIDISM [None]
